FAERS Safety Report 10640577 (Version 1)
Quarter: 2014Q4

REPORT INFORMATION
  Report Type: Spontaneous
  Country: ES (occurrence: None)
  Receive Date: 20141205
  Receipt Date: 20141205
  Transmission Date: 20150529
  Serious: Yes (Hospitalization, Other)
  Sender: FDA-Public Use
  Company Number: ES-ZYDUS-005894

PATIENT
  Age: 77 Year
  Sex: Male

DRUGS (1)
  1. CARVEDILOL (CARVEDILOL) [Suspect]
     Active Substance: CARVEDILOL

REACTIONS (11)
  - Hallucination, visual [None]
  - Accidental overdose [None]
  - Heart rate decreased [None]
  - Sinus bradycardia [None]
  - Blood pressure decreased [None]
  - Nodal arrhythmia [None]
  - Atrioventricular block [None]
  - Loss of consciousness [None]
  - Disorientation [None]
  - Blood glucose increased [None]
  - Poisoning [None]
